FAERS Safety Report 6856055-8 (Version None)
Quarter: 2010Q3

REPORT INFORMATION
  Report Type: 
  Country: None (occurrence: None)
  Receive Date: 20100715
  Receipt Date: 20100715
  Transmission Date: 20110219
  Serious: Yes (Life-Threatening, Hospitalization, Other)
  Sender: FDA-Public Use
  Company Number: None

PATIENT
  Age: 47 Year
  Sex: Female
  Weight: 52.1637 kg

DRUGS (2)
  1. YASMIN [Suspect]
     Indication: CONTRACEPTION
     Dosage: 1 TABLET ONCE A DAY PO
     Route: 048
     Dates: start: 20050101, end: 20070101
  2. OCELLA 3 MG BARR LABORATORIES [Suspect]
     Indication: CONTRACEPTION
     Dosage: 1 TABLET ONCE A DAY PO
     Route: 048
     Dates: start: 20070101, end: 20090515

REACTIONS (4)
  - BONE MARROW TRANSPLANT [None]
  - MULTIPLE MYELOMA [None]
  - RENAL FAILURE CHRONIC [None]
  - THROMBOSIS [None]
